FAERS Safety Report 12419235 (Version 1)
Quarter: 2016Q2

REPORT INFORMATION
  Report Type: Spontaneous
  Country: US (occurrence: None)
  Receive Date: 20160527
  Receipt Date: 20160527
  Transmission Date: 20160815
  Serious: Yes (Disabling)
  Sender: FDA-Public Use
  Company Number: None

PATIENT
  Age: 25 Year
  Sex: Female
  Weight: 48.99 kg

DRUGS (1)
  1. NEXPLANON [Suspect]
     Active Substance: ETONOGESTREL
     Indication: CONTRACEPTION
     Dosage: IMPLANTED GIVEN INTO/UNDER THE SKIN

REACTIONS (9)
  - Fatigue [None]
  - Depression [None]
  - Heart rate irregular [None]
  - Heart rate decreased [None]
  - Hypothyroidism [None]
  - Weight increased [None]
  - Menorrhagia [None]
  - Constipation [None]
  - Alopecia [None]

NARRATIVE: CASE EVENT DATE: 20160524
